FAERS Safety Report 5366898-8 (Version None)
Quarter: 2007Q2

REPORT INFORMATION
  Report Type: 
  Country: None (occurrence: None)
  Receive Date: 20070622
  Receipt Date: 20070409
  Transmission Date: 20071010
  Serious: No
  Sender: FDA-Public Use
  Company Number: US-ASTRAZENECA-2007UW06973

PATIENT
  Age: 87 Year
  Sex: Female
  Weight: 61.2 kg

DRUGS (9)
  1. RHINOCORT [Suspect]
     Indication: RHINITIS
     Route: 045
  2. RHINOCORT [Suspect]
     Indication: SEASONAL ALLERGY
     Route: 045
  3. LABETALOL HCL [Concomitant]
  4. POTASSIUM ACETATE [Concomitant]
  5. LASIX [Concomitant]
  6. ATROVENT [Concomitant]
  7. PATANOL [Concomitant]
  8. COZAAR [Concomitant]
  9. ZYRTEC [Concomitant]

REACTIONS (1)
  - VISION BLURRED [None]
